FAERS Safety Report 8780521 (Version 1)
Quarter: 2012Q4

REPORT INFORMATION
  Report Type: Spontaneous
  Country: US (occurrence: None)
  Receive Date: 20120829
  Receipt Date: 20120829
  Transmission Date: 20130627
  Serious: Yes (Hospitalization)
  Sender: FDA-Public Use
  Company Number: AUR-APL-2012-03619

PATIENT
  Sex: Male
  Weight: 2.18 kg

DRUGS (7)
  1. CITALOPRAM (CITALOPRAM) [Suspect]
     Dates: start: 20111004
  2. FLUOXETINE [Suspect]
     Dates: start: 20100621, end: 20111004
  3. OMEPRAZOLE [Suspect]
  4. PROPANOLOL [Suspect]
     Dates: start: 20090505
  5. CHLORPROMAZINE HYDROCHLORIDE [Suspect]
     Dates: start: 20110922
  6. DIHYDROCODEINE [Suspect]
  7. SEROQUEL XL [Suspect]
     Dates: start: 20110323, end: 20110910

REACTIONS (6)
  - Premature baby [None]
  - Caesarean section [None]
  - Neonatal respiratory distress syndrome [None]
  - Hypocalcaemia [None]
  - Pneumothorax [None]
  - Drug withdrawal syndrome neonatal [None]
